FAERS Safety Report 11058384 (Version 1)
Quarter: 2015Q2

REPORT INFORMATION
  Report Type: Spontaneous
  Country: US (occurrence: US)
  Receive Date: 20150423
  Receipt Date: 20150423
  Transmission Date: 20150821
  Serious: No
  Sender: FDA-Public Use
  Company Number: US-BIOGENIDEC-2015BI039818

PATIENT
  Sex: Female

DRUGS (1)
  1. TECFIDERA [Suspect]
     Active Substance: DIMETHYL FUMARATE
     Indication: MULTIPLE SCLEROSIS
     Route: 048
     Dates: start: 20141114, end: 20141128

REACTIONS (6)
  - Paraesthesia [Recovered/Resolved]
  - General symptom [Recovered/Resolved]
  - Burning sensation [Recovered/Resolved]
  - Sensory disturbance [Recovered/Resolved]
  - Muscle spasms [Recovered/Resolved]
  - Formication [Recovered/Resolved]
